FAERS Safety Report 21326936 (Version 3)
Quarter: 2022Q4

REPORT INFORMATION
  Report Type: Report from Study
  Country: US (occurrence: US)
  Receive Date: 20220913
  Receipt Date: 20221029
  Transmission Date: 20230112
  Serious: Yes (Hospitalization)
  Sender: FDA-Public Use
  Company Number: US-BoehringerIngelheim-2022-BI-187791

PATIENT
  Age: 82 Year
  Sex: Male

DRUGS (2)
  1. OFEV [Suspect]
     Active Substance: NINTEDANIB
     Indication: Pulmonary fibrosis
     Route: 048
  2. OFEV [Suspect]
     Active Substance: NINTEDANIB
     Indication: Interstitial lung disease

REACTIONS (6)
  - COVID-19 [Recovered/Resolved]
  - Weight decreased [Unknown]
  - Epistaxis [Unknown]
  - Increased tendency to bruise [Unknown]
  - Diarrhoea [Unknown]
  - Interstitial lung disease [Unknown]

NARRATIVE: CASE EVENT DATE: 20210101
